FAERS Safety Report 23044499 (Version 3)
Quarter: 2025Q1

REPORT INFORMATION
  Report Type: Spontaneous
  Country: PT (occurrence: PT)
  Receive Date: 20231009
  Receipt Date: 20250331
  Transmission Date: 20250409
  Serious: Yes (Other)
  Sender: ASTELLAS
  Company Number: PT-ASTELLAS-2023US029800

PATIENT
  Age: 34 Year
  Sex: Female

DRUGS (4)
  1. XOSPATA [Suspect]
     Active Substance: GILTERITINIB
     Indication: Acute monocytic leukaemia
     Route: 065
     Dates: start: 202205
  2. XOSPATA [Suspect]
     Active Substance: GILTERITINIB
     Indication: FLT3 gene mutation
  3. LEVOTHYROXINE [Concomitant]
     Active Substance: LEVOTHYROXINE
     Indication: Primary hypothyroidism
     Route: 065
  4. ESTRADIOL [Concomitant]
     Active Substance: ESTRADIOL
     Indication: Intermenstrual bleeding
     Route: 065

REACTIONS (8)
  - Acute myeloid leukaemia recurrent [Unknown]
  - Myelosuppression [Unknown]
  - Bronchopulmonary aspergillosis [Recovered/Resolved]
  - Autoimmune anaemia [Unknown]
  - Cytomegalovirus infection reactivation [Unknown]
  - Blood creatine phosphokinase increased [Unknown]
  - Parotitis [Unknown]
  - Transplantation complication [Unknown]

NARRATIVE: CASE EVENT DATE: 20221001
